FAERS Safety Report 16479061 (Version 1)
Quarter: 2019Q2

REPORT INFORMATION
  Report Type: Spontaneous
  Country: US (occurrence: US)
  Receive Date: 20190626
  Receipt Date: 20190626
  Transmission Date: 20190711
  Serious: No
  Sender: FDA-Public Use
  Company Number: US-JNJFOC-20190619532

PATIENT
  Age: 42 Year
  Sex: Female
  Weight: 99.88 kg

DRUGS (2)
  1. METHOTREXATE. [Concomitant]
     Active Substance: METHOTREXATE
     Indication: ANKYLOSING SPONDYLITIS
  2. SIMPONI [Suspect]
     Active Substance: GOLIMUMAB
     Indication: ANKYLOSING SPONDYLITIS
     Route: 058
     Dates: start: 2017

REACTIONS (6)
  - Accidental exposure to product [Unknown]
  - Injection site haemorrhage [Unknown]
  - Hypokinesia [Not Recovered/Not Resolved]
  - Device malfunction [Unknown]
  - Therapeutic response decreased [Unknown]
  - Product dose omission [Unknown]

NARRATIVE: CASE EVENT DATE: 2018
